FAERS Safety Report 9521445 (Version 1)
Quarter: 2013Q1

REPORT INFORMATION
  Report Type: Spontaneous
  Country: US (occurrence: None)
  Receive Date: 20130305
  Receipt Date: 20130305
  Transmission Date: 20140127
  Serious: Yes (Other)
  Sender: FDA-Public Use
  Company Number: 163-21880-12073202

PATIENT
  Age: 61 Year
  Sex: Male

DRUGS (28)
  1. REVLIMID [Suspect]
     Indication: PLASMA CELL MYELOMA
     Dosage: MONDAY TO FRIDAY
     Route: 048
     Dates: start: 201104, end: 2011
  2. CALCIUM CARBONATE/VITAMIN D (LEKOVIT CA) [Concomitant]
  3. CYMBALTA (DULOXETINE HYDROCHLORIDE) [Concomitant]
  4. DECADRON (DEXAMETHASONE) [Concomitant]
  5. DOCUSATE SODIUM (DOCUSATE SODIUM) [Concomitant]
  6. DULERA (DULERA) (AEROSOL FOR INHALATION) [Concomitant]
  7. HYDRALAZINE (HYDRLAZINE) (TABLETS) [Concomitant]
  8. LACTULOSE (LACTLOSE) (SOLUTION) [Concomitant]
  9. LORATIDINE [Concomitant]
  10. LOVAZA (OMEGA-3 MARINE TRIGLYCERIDES) (CAPSULES) [Concomitant]
  11. METAMUCIL (METAMUCIL ^PROCTER + GAMBLE^) (POWDER) [Concomitant]
  12. MIRALAX (MACROGOL) (POWDER) [Concomitant]
  13. NEXIUM (ESOMEPRAZOLE) (CAPSULES) [Concomitant]
  14. NIACIN (NICOTINIC ACID) (CAPSULES) [Concomitant]
  15. NUCYNTA ER (TAPENTADOL HYDROCHLORIDE) [Concomitant]
  16. NYSTAT/TRIAM (OTHER ANTIBIOTICS FOR TOPICAL USE) (CREAM) [Concomitant]
  17. OXYCODONE (OXYCODONE) (TABLETS) [Concomitant]
  18. OXYCONTIN (OXYCODONE HYDROCHLORIDE) [Concomitant]
  19. PROAIR HFA (SALBUTAMOL SULFATE) (AEROSOL FOR INHALATION) [Concomitant]
  20. PROCRIT (ERYTHROPOIETIN) (INJECTION) [Concomitant]
  21. SERTRALINE (SERTRALINE) (TABLETS) [Concomitant]
  22. SODIUM BICARBONATE (SODIUM BICARBONATE) [Concomitant]
  23. TAMSULOSIN (TAMSULOSIN) (CAPSULES) [Concomitant]
  24. TEMAZEPAM (TEMAZEPAM) (CAPSULES) [Concomitant]
  25. VITAMIN B6 (PYRIDOXINE HYDROCHLORIDE) [Concomitant]
  26. VITAMIN D (ERGOCALCIFEROL) (TABLETS) [Concomitant]
  27. ZOLPIDEM (ZOLPIDEM) (TABLETS) [Concomitant]
  28. VELCADE (BORTEZOMIB) [Concomitant]

REACTIONS (3)
  - Dyspnoea [None]
  - Thrombocytopenia [None]
  - Plasma cell myeloma [None]
